FAERS Safety Report 6585633-9 (Version None)
Quarter: 2010Q1

REPORT INFORMATION
  Report Type: 
  Country: None (occurrence: None)
  Receive Date: 20100217
  Receipt Date: 20090828
  Transmission Date: 20100710
  Serious: Yes (Death)
  Sender: FDA-Public Use
  Company Number: US-PFIZER INC-2009265512

PATIENT
  Age: 35 Year
  Sex: Male

DRUGS (6)
  1. GEODON [Suspect]
     Indication: SCHIZOAFFECTIVE DISORDER
     Dosage: 240 MG, UNK
     Dates: end: 20090101
  2. GEODON [Suspect]
     Indication: OBSESSIVE-COMPULSIVE DISORDER
  3. GEODON [Suspect]
     Route: 030
     Dates: start: 20090101, end: 20090101
  4. GEODON [Suspect]
     Dates: end: 20090101
  5. CLOMIPRAMINE HCL [Concomitant]
  6. DEPAKOTE [Concomitant]

REACTIONS (1)
  - SEROTONIN SYNDROME [None]
